FAERS Safety Report 4955671-8 (Version None)
Quarter: 2006Q1

REPORT INFORMATION
  Report Type: 
  Country: None (occurrence: None)
  Receive Date: 20060323
  Receipt Date: 20060310
  Transmission Date: 20060701
  Serious: Yes (Life-Threatening)
  Sender: FDA-Public Use
  Company Number: HQWYE304413MAR06

PATIENT
  Age: 85 Year
  Sex: Female

DRUGS (10)
  1. MYLOTARG [Suspect]
     Indication: ACUTE MYELOID LEUKAEMIA
     Dosage: 9 MG/M^2 1X PER 1 DAY INTRAVENOUS DRIP
     Route: 041
     Dates: start: 20051205, end: 20051205
  2. MYLOTARG [Suspect]
     Indication: ACUTE MYELOID LEUKAEMIA
     Dosage: 9 MG/M^2 1X PER 1 DAY INTRAVENOUS DRIP
     Route: 041
     Dates: start: 20060131, end: 20060131
  3. ACLARUBICIN HYDROCHLORIDE               (ACLARUBICIN HYDROCHLORIDE) [Concomitant]
  4. FOSMICIN S (FOSFOMYCIN SODIUM) [Concomitant]
  5. MAXIPIME [Concomitant]
  6. ............... [Concomitant]
  7. VANCOMYCIN [Concomitant]
  8. FUNGUARD (MICAFUNGIN SODIUM) [Concomitant]
  9. PAZUCROSS (PAZUFLOXACIN MESILATE) [Concomitant]
  10. ENOCITABINE (ENOCITABINE) [Concomitant]

REACTIONS (11)
  - ACUTE MYELOID LEUKAEMIA [None]
  - ALANINE AMINOTRANSFERASE INCREASED [None]
  - ASPARTATE AMINOTRANSFERASE INCREASED [None]
  - BLOOD ALKALINE PHOSPHATASE INCREASED [None]
  - BLOOD CREATININE INCREASED [None]
  - BLOOD UREA INCREASED [None]
  - FEBRILE NEUTROPENIA [None]
  - LIVER DISORDER [None]
  - MALIGNANT NEOPLASM PROGRESSION [None]
  - PANCYTOPENIA [None]
  - RENAL DISORDER [None]
